FAERS Safety Report 18775898 (Version 1)
Quarter: 2021Q1

REPORT INFORMATION
  Report Type: Report from Study
  Country: US (occurrence: US)
  Receive Date: 20210122
  Receipt Date: 20210122
  Transmission Date: 20210419
  Serious: Yes (Hospitalization, Other)
  Sender: FDA-Public Use
  Company Number: US-PFIZER INC-2020363699

PATIENT
  Age: 63 Year
  Sex: Female

DRUGS (1)
  1. IBRANCE [Suspect]
     Active Substance: PALBOCICLIB
     Indication: BREAST CANCER FEMALE
     Dosage: 125 MG, CYCLIC (DAILY, DAYS 1?21 OF 28 DAYS CYCLE)
     Route: 048
     Dates: start: 20200820

REACTIONS (8)
  - Ammonia increased [Unknown]
  - Urinary tract infection [Unknown]
  - Arthralgia [Unknown]
  - Fluid intake reduced [Unknown]
  - Vaginal haemorrhage [Unknown]
  - White blood cell count decreased [Unknown]
  - Decreased appetite [Unknown]
  - Platelet count decreased [Unknown]

NARRATIVE: CASE EVENT DATE: 2020
